FAERS Safety Report 8670009 (Version 2)
Quarter: 2012Q4

REPORT INFORMATION
  Report Type: Spontaneous
  Country: US (occurrence: None)
  Receive Date: 20120702
  Receipt Date: 20120912
  Transmission Date: 20130627
  Serious: Yes (Other)
  Sender: FDA-Public Use
  Company Number: US-20120033

PATIENT
  Age: 48 Year
  Sex: Male
  Weight: 68 kg

DRUGS (1)
  1. IOXILAN [Suspect]
     Indication: THROMBECTOMY
     Dosage: 1 in 1 total
     Dates: start: 20120601, end: 20120601

REACTIONS (4)
  - PRURITUS [None]
  - ERYTHEMA [None]
  - CHILLS [None]
  - DYSPNOEA [None]
